FAERS Safety Report 5423155-9 (Version None)
Quarter: 2007Q3

REPORT INFORMATION
  Report Type: 
  Country: None (occurrence: None)
  Receive Date: 20070821
  Receipt Date: 20070808
  Transmission Date: 20080115
  Serious: Yes (Hospitalization)
  Sender: FDA-Public Use
  Company Number: GXKR2007IT06812

PATIENT
  Age: 57 Year
  Sex: Female

DRUGS (5)
  1. FLURBIPROFEN [Suspect]
     Indication: BACK PAIN
     Dosage: 200 MG, ORAL
     Route: 048
  2. IRBESARTAN [Concomitant]
  3. HYDROCHLOROTHIAZIDE [Concomitant]
  4. SPIRONOLACTONE [Concomitant]
  5. SALBUTAMOL       (SALBUTAMOL) [Concomitant]

REACTIONS (7)
  - CROSS SENSITIVITY REACTION [None]
  - DYSPNOEA [None]
  - HYPERSENSITIVITY [None]
  - NAUSEA [None]
  - PANCREATITIS ACUTE [None]
  - VOMITING [None]
  - WHEEZING [None]
